FAERS Safety Report 12591413 (Version 2)
Quarter: 2016Q3

REPORT INFORMATION
  Report Type: Spontaneous
  Country: US (occurrence: US)
  Receive Date: 20160726
  Receipt Date: 20160727
  Transmission Date: 20161109
  Serious: No
  Sender: FDA-Public Use
  Company Number: US-UNITED THERAPEUTICS-UNT-2016-006126

PATIENT
  Age: 25 Year
  Sex: Female
  Weight: 45.58 kg

DRUGS (2)
  1. REMODULIN [Suspect]
     Active Substance: TREPROSTINIL
     Indication: PULMONARY ARTERIAL HYPERTENSION
     Dosage: 0.0065 ?G/KG, CONTINUING
     Route: 041
     Dates: start: 20160323
  2. REMODULIN [Suspect]
     Active Substance: TREPROSTINIL
     Dosage: 0.011 UNK, UNK
     Route: 041

REACTIONS (4)
  - Device dislocation [Unknown]
  - Drug dose omission [Unknown]
  - Injection site irritation [Unknown]
  - Dermatitis contact [Unknown]

NARRATIVE: CASE EVENT DATE: 201604
